FAERS Safety Report 5956842-4 (Version None)
Quarter: 2008Q4

REPORT INFORMATION
  Report Type: 
  Country: None (occurrence: None)
  Receive Date: 20081114
  Receipt Date: 20081114
  Transmission Date: 20090506
  Serious: Yes (Life-Threatening, Hospitalization)
  Sender: FDA-Public Use
  Company Number: None

PATIENT
  Sex: Female
  Weight: 54.4316 kg

DRUGS (1)
  1. AMANTADINE HCL [Suspect]
     Indication: PROPHYLAXIS
     Dosage: DAILY PO
     Route: 048
     Dates: start: 20030308, end: 20030313

REACTIONS (5)
  - CARDIAC FAILURE CONGESTIVE [None]
  - DRUG HYPERSENSITIVITY [None]
  - FATIGUE [None]
  - RENAL FAILURE [None]
  - RESPIRATORY FAILURE [None]
